FAERS Safety Report 6537785-4 (Version None)
Quarter: 2010Q1

REPORT INFORMATION
  Report Type: 
  Country: None (occurrence: None)
  Receive Date: 20100114
  Receipt Date: 20100105
  Transmission Date: 20100710
  Serious: Yes (Other)
  Sender: FDA-Public Use
  Company Number: IE-PFIZER INC-2009295243

PATIENT
  Age: 67 Year
  Sex: Female
  Weight: 58 kg

DRUGS (9)
  1. LIPITOR [Suspect]
     Indication: BLOOD CHOLESTEROL INCREASED
     Dosage: 40 MG, 1X/DAY
     Route: 048
     Dates: start: 20090819
  2. LIPITOR [Interacting]
     Indication: PERCUTANEOUS CORONARY INTERVENTION
     Dosage: 20 MG, 1X/DAY
  3. PROPAFENONE [Interacting]
     Indication: ATRIAL FIBRILLATION
     Dosage: 150 MG, 2X/DAY
     Route: 048
     Dates: start: 20070101
  4. VALSARTAN [Concomitant]
     Indication: HYPERTENSION
     Dosage: 80 MG, 1X/DAY
     Dates: start: 20090819
  5. ZANTAC [Concomitant]
     Indication: GASTRITIS
     Dosage: 150 MG, 2X/DAY
     Route: 048
     Dates: start: 20070101
  6. ACETYLSALICYLIC ACID [Concomitant]
     Indication: PERCUTANEOUS CORONARY INTERVENTION
     Dosage: 75 MG, 1X/DAY
     Route: 048
     Dates: start: 20090819
  7. CLAVIX AS [Concomitant]
  8. OMACOR [Concomitant]
     Dosage: 1 G, 1X/DAY
     Route: 048
     Dates: start: 20090819
  9. PLAVIX [Concomitant]
     Indication: PERCUTANEOUS CORONARY INTERVENTION
     Dosage: 75 MG, 1X/DAY
     Route: 048
     Dates: start: 20090819

REACTIONS (4)
  - BLOOD CHOLESTEROL INCREASED [None]
  - CHOLELITHIASIS [None]
  - GAMMA-GLUTAMYLTRANSFERASE INCREASED [None]
  - LIVER FUNCTION TEST ABNORMAL [None]
